FAERS Safety Report 7766138-6 (Version None)
Quarter: 2011Q3

REPORT INFORMATION
  Report Type: 
  Country: None (occurrence: None)
  Receive Date: 20110921
  Receipt Date: 20110912
  Transmission Date: 20111222
  Serious: Yes (Hospitalization)
  Sender: FDA-Public Use
  Company Number: CA-ASTRAZENECA-2011SE54981

PATIENT
  Age: 67 Year
  Sex: Male

DRUGS (11)
  1. NEXIUM [Suspect]
     Route: 048
  2. CLONIDINE [Concomitant]
  3. ASPIRIN [Concomitant]
  4. FERROUS SULFATE TAB [Concomitant]
  5. ROCALTROL [Concomitant]
  6. LIPITOR [Concomitant]
  7. NORVASC [Concomitant]
  8. VIT B12 [Concomitant]
  9. ALLOPURINOL [Concomitant]
  10. IMDUR [Suspect]
     Indication: ANGINA PECTORIS
     Route: 048
     Dates: start: 20100201
  11. BISOPROLOL FUMARATE [Concomitant]

REACTIONS (1)
  - POST PROCEDURAL COMPLICATION [None]
